FAERS Safety Report 8243188-7 (Version None)
Quarter: 2012Q1

REPORT INFORMATION
  Report Type: 
  Country: None (occurrence: None)
  Receive Date: 20120314
  Receipt Date: 20110301
  Transmission Date: 20120608
  Serious: Yes (Death)
  Sender: FDA-Public Use
  Company Number: PHHY2011US17434

PATIENT
  Age: 42 Year
  Sex: Male

DRUGS (7)
  1. FANAPT [Suspect]
     Dosage: 12 MG, BID, ORAL
     Route: 048
  2. ZOLOFT [Concomitant]
  3. LAMICTAL [Concomitant]
  4. RESTORIL [Concomitant]
  5. ZYPREXA [Concomitant]
  6. CLONAPIN (CLONAZEPAM) [Concomitant]
  7. NEURONTIN [Concomitant]

REACTIONS (1)
  - SUDDEN DEATH [None]
